FAERS Safety Report 6533562-9 (Version None)
Quarter: 2010Q1

REPORT INFORMATION
  Report Type: 
  Country: None (occurrence: None)
  Receive Date: 20100111
  Receipt Date: 20100104
  Transmission Date: 20100710
  Serious: Yes (Hospitalization, Other)
  Sender: FDA-Public Use
  Company Number: US-ELI_LILLY_AND_COMPANY-US201001000455

PATIENT
  Sex: Female
  Weight: 50.794 kg

DRUGS (2)
  1. BYETTA [Suspect]
     Indication: TYPE 2 DIABETES MELLITUS
     Dosage: 5 UG, DAILY (1/D)
     Dates: start: 20050101
  2. BYETTA [Suspect]
     Dosage: 5 UG, DAILY (1/D)

REACTIONS (20)
  - BLOOD GLUCOSE FLUCTUATION [None]
  - BODY TEMPERATURE FLUCTUATION [None]
  - DECREASED APPETITE [None]
  - DEVICE MISUSE [None]
  - DRUG DOSE OMISSION [None]
  - EMOTIONAL DISORDER [None]
  - FEELING ABNORMAL [None]
  - HERNIA [None]
  - HUNGER [None]
  - INCORRECT DOSE ADMINISTERED [None]
  - INSOMNIA [None]
  - INTENTIONAL DRUG MISUSE [None]
  - MALIGNANT MELANOMA [None]
  - PRESYNCOPE [None]
  - SCAR [None]
  - SPINAL FUSION SURGERY [None]
  - THIRST [None]
  - THYROID CANCER [None]
  - TREMOR [None]
  - WEIGHT DECREASED [None]
